FAERS Safety Report 22605574 (Version 1)
Quarter: 2023Q2

REPORT INFORMATION
  Report Type: Spontaneous
  Country: US (occurrence: US)
  Receive Date: 20230615
  Receipt Date: 20230615
  Transmission Date: 20230722
  Serious: No
  Sender: FDA-Public Use
  Company Number: US-PFIZER INC-PV202300105354

PATIENT
  Age: 55 Year
  Sex: Female

DRUGS (1)
  1. DEXTRAN [Suspect]
     Active Substance: DEXTRAN
     Dosage: UNK

REACTIONS (2)
  - Urticaria [Unknown]
  - Pruritus [Unknown]
